FAERS Safety Report 24765577 (Version 1)
Quarter: 2024Q4

REPORT INFORMATION
  Report Type: Spontaneous
  Country: US (occurrence: None)
  Receive Date: 20241220
  Receipt Date: 20241220
  Transmission Date: 20250115
  Serious: Yes (Death)
  Sender: Public
  Company Number: None

PATIENT
  Age: 84 Year
  Sex: Male

DRUGS (6)
  1. SIROLIMUS [Suspect]
     Active Substance: SIROLIMUS
     Indication: Renal transplant
     Dosage: 1 MG DAILY ORAL
     Route: 048
     Dates: start: 20240327
  2. CALCIUM 600 + D [Concomitant]
     Dosage: FREQUENCY : TWICE A DAY;?
     Route: 048
     Dates: start: 20240727
  3. MAGNESIUM [Concomitant]
     Active Substance: MAGNESIUM
  4. MULTIVITAMIN ADULT 50+ [Concomitant]
  5. MYCOPHENOLATE MOFETIL [Concomitant]
     Active Substance: MYCOPHENOLATE MOFETIL
  6. MYCOPHENOLATE MOFETIL [Suspect]
     Active Substance: MYCOPHENOLATE MOFETIL
     Indication: Renal transplant
     Dosage: 500MG BID ORAL
     Route: 048
     Dates: start: 20230727

REACTIONS (1)
  - Death [None]

NARRATIVE: CASE EVENT DATE: 20241216
